FAERS Safety Report 7265782 (Version 2)
Quarter: 2012Q4

REPORT INFORMATION
  Report Type: Report from Study
  Country: US (occurrence: US)
  Receive Date: 20121030
  Receipt Date: 20121030
  Transmission Date: 20130627
  Serious: Yes (Other)
  Sender: FDA-Public Use
  Company Number: US-ABBOTT-09P-163-0614174-00

PATIENT
  Age: 57 Year
  Sex: Female
  Weight: 78.54 kg

DRUGS (9)
  1. HUMIRA 40 MG/0.8 ML PEN [Suspect]
     Indication: RHEUMATOID ARTHRITIS
     Route: 058
     Dates: start: 20090915
  2. HUMIRA 40 MG/0.8 ML PEN [Suspect]
     Indication: SPINAL OSTEOARTHRITIS
  3. METOPROLOL [Suspect]
     Indication: HYPERTENSION
     Dates: start: 2007, end: 20091126
  4. METOPROLOL [Suspect]
     Dates: start: 20091127
  5. LOVOXYL [Concomitant]
     Indication: HYPOTHYROIDISM
  6. LYRICA [Concomitant]
     Indication: FIBROMYALGIA
  7. CYMBALTA [Concomitant]
     Indication: FIBROMYALGIA
  8. FUROSEMIDE [Concomitant]
     Indication: HYPERTENSION
  9. FUROSEMIDE [Concomitant]
     Indication: FLUID RETENTION

REACTIONS (8)
  - Hypotension [Recovered/Resolved]
  - Heart rate decreased [Not Recovered/Not Resolved]
  - Confusional state [Recovered/Resolved]
  - Fatigue [Recovered/Resolved]
  - Chest pain [Recovered/Resolved]
  - Fall [Recovered/Resolved]
  - Speech disorder [Recovered/Resolved]
  - Dysarthria [Recovered/Resolved]
